FAERS Safety Report 12384341 (Version 3)
Quarter: 2016Q2

REPORT INFORMATION
  Report Type: Report from Study
  Country: US (occurrence: US)
  Receive Date: 20160519
  Receipt Date: 20160623
  Transmission Date: 20160815
  Serious: Yes (Other)
  Sender: FDA-Public Use
  Company Number: US-009507513-1605USA008164

PATIENT
  Sex: Male

DRUGS (1)
  1. CRIXIVAN [Suspect]
     Active Substance: INDINAVIR SULFATE
     Dosage: 540 MG/THREE TIMES A DAY
     Route: 048

REACTIONS (2)
  - Gait disturbance [Unknown]
  - Neoplasm malignant [Recovering/Resolving]
